FAERS Safety Report 4435315-4 (Version None)
Quarter: 2004Q3

REPORT INFORMATION
  Report Type: 
  Country: None (occurrence: None)
  Receive Date: 20040827
  Receipt Date: 20040827
  Transmission Date: 20050211
  Serious: Yes (Other)
  Sender: FDA-Public Use
  Company Number: None

PATIENT
  Age: 27 Year
  Sex: Male
  Weight: 88.5 kg

DRUGS (1)
  1. EFFEXOR [Suspect]

REACTIONS (1)
  - GLOSSITIS [None]
